FAERS Safety Report 18972157 (Version 1)
Quarter: 2021Q1

REPORT INFORMATION
  Report Type: Other
  Country: CN (occurrence: CN)
  Receive Date: 20210305
  Receipt Date: 20210305
  Transmission Date: 20210420
  Serious: Yes (Other)
  Sender: FDA-Public Use
  Company Number: CN-ROCHE-2776699

PATIENT

DRUGS (8)
  1. TISLELIZUMAB [Suspect]
     Active Substance: TISLELIZUMAB
     Indication: GASTRIC CANCER
  2. CAPECITABINE. [Suspect]
     Active Substance: CAPECITABINE
     Indication: GASTRIC CANCER
  3. TISLELIZUMAB [Suspect]
     Active Substance: TISLELIZUMAB
     Indication: GASTROOESOPHAGEAL CANCER
     Dosage: 21 DAY CYCLE
     Route: 042
  4. CAPECITABINE. [Suspect]
     Active Substance: CAPECITABINE
     Indication: GASTROOESOPHAGEAL CANCER
     Dosage: 21?DAY CYCLE, EVENING OF DAY 1 THROUGH THE MORNING OF DAY 15.
     Route: 048
  5. OXALIPLATIN. [Suspect]
     Active Substance: OXALIPLATIN
     Indication: GASTRIC CANCER
  6. 5?FU [Suspect]
     Active Substance: FLUOROURACIL
     Indication: OESOPHAGEAL SQUAMOUS CELL CARCINOMA
     Dosage: CONTINUOUS PUMPING SYSTEM ON DAYS 1?5, 21 DAY CYCLE
     Route: 042
  7. OXALIPLATIN. [Suspect]
     Active Substance: OXALIPLATIN
     Indication: GASTROOESOPHAGEAL CANCER
     Dosage: ON DAY 1, 21?DAY CYCLE
     Route: 042
  8. CISPLATIN. [Suspect]
     Active Substance: CISPLATIN
     Indication: OESOPHAGEAL SQUAMOUS CELL CARCINOMA
     Dosage: ON DAY 1, 21?DAY CYCLE
     Route: 042

REACTIONS (18)
  - Aspartate aminotransferase increased [Unknown]
  - White blood cell count decreased [Unknown]
  - Anaemia [Unknown]
  - Vomiting [Unknown]
  - Hypokalaemia [Unknown]
  - Thrombocytopenia [Unknown]
  - Platelet count decreased [Unknown]
  - Decreased appetite [Unknown]
  - Neutrophil count decreased [Unknown]
  - Diarrhoea [Unknown]
  - Pneumonitis [Unknown]
  - Hyponatraemia [Unknown]
  - Asthenia [Unknown]
  - Leukopenia [Unknown]
  - Alanine aminotransferase increased [Unknown]
  - Blood bilirubin increased [Unknown]
  - Neutropenia [Unknown]
  - Weight decreased [Unknown]
